FAERS Safety Report 4983210-4 (Version None)
Quarter: 2006Q2

REPORT INFORMATION
  Report Type: 
  Country: None (occurrence: None)
  Receive Date: 20060419
  Receipt Date: 20060406
  Transmission Date: 20061013
  Serious: Yes (Hospitalization)
  Sender: FDA-Public Use
  Company Number: 2006-BP-03983RO

PATIENT
  Age: 55 Year
  Sex: Female

DRUGS (5)
  1. METHOTREXATE [Suspect]
     Indication: RHEUMATOID ARTHRITIS
     Dosage: 7.5 MG PER WEEK
  2. CELECOXIB (CELECOXIB) [Concomitant]
  3. PREDNISOLONE [Concomitant]
  4. SULFASALAZINE [Concomitant]
  5. FOLIC ACID [Concomitant]

REACTIONS (19)
  - ACTIVATED PARTIAL THROMBOPLASTIN TIME PROLONGED [None]
  - ALANINE AMINOTRANSFERASE INCREASED [None]
  - ASPARTATE AMINOTRANSFERASE INCREASED [None]
  - BLOOD ALKALINE PHOSPHATASE INCREASED [None]
  - BLOOD PRESSURE SYSTOLIC INCREASED [None]
  - CARBUNCLE [None]
  - DERMATITIS EXFOLIATIVE [None]
  - FATIGUE [None]
  - FEBRILE NEUTROPENIA [None]
  - INCREASED TENDENCY TO BRUISE [None]
  - MOUTH ULCERATION [None]
  - ORAL CANDIDIASIS [None]
  - PANCYTOPENIA [None]
  - PROTHROMBIN TIME SHORTENED [None]
  - PYREXIA [None]
  - RASH ERYTHEMATOUS [None]
  - RED BLOOD CELLS URINE POSITIVE [None]
  - SKIN ULCER [None]
  - WHITE BLOOD CELLS URINE POSITIVE [None]
